FAERS Safety Report 9064745 (Version 2)
Quarter: 2013Q1

REPORT INFORMATION
  Report Type: Spontaneous
  Country: US (occurrence: US)
  Receive Date: 20130213
  Receipt Date: 20130321
  Transmission Date: 20140127
  Serious: Yes (Other)
  Sender: FDA-Public Use
  Company Number: US-AMGEN-USASP2013009250

PATIENT
  Age: 79 Year
  Sex: Female

DRUGS (11)
  1. SENSIPAR [Suspect]
     Indication: HYPERPARATHYROIDISM SECONDARY
     Dosage: 30 MG, QD
     Dates: start: 201212
  2. EPOGEN [Suspect]
     Indication: NEPHROGENIC ANAEMIA
     Dosage: UNK
  3. PHOSLO [Concomitant]
     Dosage: UNK
  4. TRICOR                             /00090101/ [Concomitant]
     Dosage: UNK
  5. CREON [Concomitant]
     Dosage: UNK
  6. LOPERAMIDE [Concomitant]
     Dosage: UNK
  7. BABY ASPIRIN [Concomitant]
     Dosage: UNK
  8. VITAMIN B12                        /00056201/ [Concomitant]
     Dosage: 500 UNK, UNK
  9. RANITIDINE [Concomitant]
     Dosage: UNK
  10. ZEMPLAR [Concomitant]
     Dosage: UNK
  11. IRON [Concomitant]
     Dosage: UNK

REACTIONS (5)
  - Renal failure [Unknown]
  - Ileostomy [Unknown]
  - Post procedural complication [Unknown]
  - Fatigue [Unknown]
  - Hot flush [Not Recovered/Not Resolved]
